FAERS Safety Report 10061398 (Version 2)
Quarter: 2014Q2

REPORT INFORMATION
  Report Type: Report from Study
  Country: PL (occurrence: PL)
  Receive Date: 20140407
  Receipt Date: 20140428
  Transmission Date: 20141212
  Serious: Yes (Hospitalization)
  Sender: FDA-Public Use
  Company Number: PL-AMGEN-POLCT2014023691

PATIENT
  Age: 79 Year
  Sex: Female
  Weight: 42 kg

DRUGS (14)
  1. AMG 785 [Suspect]
     Indication: OSTEOPOROSIS POSTMENOPAUSAL
     Dosage: 210 MG, UNK
     Route: 058
     Dates: start: 20130102, end: 20131203
  2. DENOSUMAB [Suspect]
     Indication: OSTEOPOROSIS POSTMENOPAUSAL
     Dosage: 1 ML, UNK
     Route: 058
     Dates: start: 20140103
  3. CALCIUM [Concomitant]
     Dosage: 500 MG, UNK
     Route: 048
     Dates: start: 20121116
  4. VITAMIN D                          /00107901/ [Concomitant]
     Dosage: 800 IU, UNK
     Route: 048
     Dates: start: 20121116
  5. BISOCARD [Concomitant]
     Dosage: 5 MG, UNK
     Route: 048
     Dates: start: 20070805, end: 20140328
  6. ACURENAL [Concomitant]
     Dosage: 20 MG, UNK
     Route: 048
     Dates: start: 2008, end: 20140317
  7. HYGROTON [Concomitant]
     Dosage: 50 MG, UNK
     Route: 048
     Dates: start: 20070805, end: 20140317
  8. SIMVAGEN [Concomitant]
     Dosage: 20 MG, UNK
     Route: 048
     Dates: start: 2000
  9. KALIPOZ [Concomitant]
     Dosage: 391 MG, UNK
     Route: 048
     Dates: start: 20070805, end: 20140317
  10. HELICID                            /00661201/ [Concomitant]
     Dosage: 20 MG, UNK
     Route: 048
     Dates: start: 20070810, end: 20140317
  11. TENOX                              /00393701/ [Concomitant]
     Dosage: 5 MG, UNK
     Route: 048
     Dates: start: 2009, end: 20140317
  12. DICLOFENAC [Concomitant]
     Dosage: 50 MG, UNK
     Route: 048
     Dates: start: 2010, end: 20140317
  13. MAGNESIUM [Concomitant]
     Dosage: 200 MG, UNK
     Route: 048
     Dates: start: 20121116
  14. AMLODIPINE [Concomitant]
     Dosage: 5 MG, UNK
     Dates: start: 2009, end: 20140317

REACTIONS (1)
  - Cognitive disorder [Not Recovered/Not Resolved]
